FAERS Safety Report 6315498-1 (Version None)
Quarter: 2009Q3

REPORT INFORMATION
  Report Type: 
  Country: None (occurrence: None)
  Receive Date: 20090819
  Receipt Date: 20090807
  Transmission Date: 20100115
  Serious: Yes (Other)
  Sender: FDA-Public Use
  Company Number: CA-PFIZER INC-2009252430

PATIENT

DRUGS (4)
  1. ZELDOX [Suspect]
     Dosage: 80 MG, 2X/DAY
     Dates: start: 20090803
  2. OLANZAPINE [Interacting]
     Dosage: 15 MG, UNK
  3. OLANZAPINE [Interacting]
     Dosage: 10 MG, UNK
  4. OLANZAPINE [Interacting]
     Dosage: 5 MG, UNK

REACTIONS (8)
  - DISTURBANCE IN ATTENTION [None]
  - DIZZINESS [None]
  - DRUG INTERACTION [None]
  - FATIGUE [None]
  - FEELING ABNORMAL [None]
  - PSYCHOMOTOR HYPERACTIVITY [None]
  - RESTLESSNESS [None]
  - SOMNOLENCE [None]
